FAERS Safety Report 23676978 (Version 1)
Quarter: 2024Q1

REPORT INFORMATION
  Report Type: Spontaneous
  Country: US (occurrence: US)
  Receive Date: 20240327
  Receipt Date: 20240327
  Transmission Date: 20240409
  Serious: No
  Sender: FDA-Public Use
  Company Number: US-Hill Dermaceuticals, Inc.-2154863

PATIENT
  Age: 59 Year
  Sex: Male

DRUGS (1)
  1. FLUOCINOLONE ACETONIDE [Suspect]
     Active Substance: FLUOCINOLONE ACETONIDE
     Indication: Hand dermatitis

REACTIONS (1)
  - Therapeutic product ineffective [Unknown]
